FAERS Safety Report 10871420 (Version 8)
Quarter: 2015Q2

REPORT INFORMATION
  Report Type: Spontaneous
  Country: US (occurrence: US)
  Receive Date: 20150226
  Receipt Date: 20150603
  Transmission Date: 20150821
  Serious: Yes (Hospitalization, Other)
  Sender: FDA-Public Use
  Company Number: US-PFIZER INC-2015067769

PATIENT
  Age: 85 Year
  Sex: Female
  Weight: 73 kg

DRUGS (22)
  1. DIPHENHYDRAMINE [Concomitant]
     Active Substance: DIPHENHYDRAMINE
     Indication: SLEEP DISORDER
     Dosage: 25 MG, UNK
  2. LYRICA [Suspect]
     Active Substance: PREGABALIN
     Indication: NEURALGIA
     Dosage: 100 MG, 2X/DAY
     Dates: start: 2010
  3. OXYGEN. [Concomitant]
     Active Substance: OXYGEN
     Dosage: UNK (2 LITTERS)
     Dates: start: 2014
  4. EVISTA [Concomitant]
     Active Substance: RALOXIFENE HYDROCHLORIDE
     Indication: OSTEOPOROSIS
     Dosage: 60 MG, 1X/DAY (SM WHITE OVAL)
  5. ACETIC ACID. [Concomitant]
     Active Substance: ACETIC ACID
     Indication: EAR PAIN
     Dosage: 3 DROPS IN EACH EAR 4X DAY AS NEEDED
  6. LYRICA [Suspect]
     Active Substance: PREGABALIN
     Indication: PAIN
     Dosage: 100 MG, 2X/DAY
     Route: 048
     Dates: start: 20080820
  7. LASIX [Concomitant]
     Active Substance: FUROSEMIDE
     Indication: FLUID RETENTION
     Dosage: 20 MG, 1X/DAY
     Route: 042
  8. PRILOSEC [Concomitant]
     Active Substance: OMEPRAZOLE MAGNESIUM
     Indication: GASTROOESOPHAGEAL REFLUX DISEASE
     Dosage: 20 MG, 1X/DAY (BLUE CAPSULE)
  9. D VITAMIN [Concomitant]
     Dosage: 2000 MG, UNK (OTC)
  10. TYLENOL [Concomitant]
     Active Substance: ACETAMINOPHEN
     Indication: PAIN
     Dosage: 650 MG, 3X/DAY (OTC)
  11. POTASSIUM [Concomitant]
     Active Substance: POTASSIUM
     Dosage: 20 MG, 1X/DAY  (WHILE ON IV)
     Route: 042
  12. LYRICA [Suspect]
     Active Substance: PREGABALIN
     Indication: FIBROMYALGIA
     Dosage: 100 MG, 2X/DAY
     Route: 048
     Dates: start: 2008
  13. COREG [Concomitant]
     Active Substance: CARVEDILOL
     Indication: CARDIAC DISORDER
     Dosage: 3.125; 1/2 A DAY
  14. CELEBREX [Suspect]
     Active Substance: CELECOXIB
     Indication: ARTHRITIS
     Dosage: 200 MG, 1X/DAY (WHITE CAPSULE WITH TWO YELLOW STRIPES)
     Dates: start: 2014
  15. VENLAFAXINE [Concomitant]
     Active Substance: VENLAFAXINE HYDROCHLORIDE
     Indication: ANXIETY
     Dosage: 75 MG, 1X/DAY
  16. FLUTICASONE [Concomitant]
     Active Substance: FLUTICASONE\FLUTICASONE PROPIONATE
     Indication: HYPERSENSITIVITY
     Dosage: 50MG; 2 SPRAYS EACH NOSTRIL
     Route: 045
  17. CALCIUM+ D [Concomitant]
     Dosage: UNK, 2X/DAY
  18. LEVOTHYROXINE [Concomitant]
     Active Substance: LEVOTHYROXINE
     Indication: THYROID DISORDER
     Dosage: 88 MG, 1X/DAY (YELLOW OVAL)
  19. BETAMETHASONE [Concomitant]
     Active Substance: BETAMETHASONE
     Indication: SKIN FISSURES
     Dosage: UNK, AS NEEDED
  20. PREMARIN [Concomitant]
     Active Substance: ESTROGENS, CONJUGATED
     Dosage: UNK, 1X/DAY
  21. XENAZINE [Concomitant]
     Active Substance: TETRABENAZINE
     Indication: MOVEMENT DISORDER
     Dosage: 37.5 MG, DAILY
  22. CALCITONIN SALMON. [Concomitant]
     Active Substance: CALCITONIN SALMON
     Indication: BONE DISORDER
     Dosage: 3.7 ML, DAILY
     Route: 045

REACTIONS (4)
  - Subcutaneous haematoma [Recovered/Resolved]
  - Fall [Not Recovered/Not Resolved]
  - Cerebral thrombosis [Recovered/Resolved]
  - Somnolence [Not Recovered/Not Resolved]

NARRATIVE: CASE EVENT DATE: 20150206
